FAERS Safety Report 18145009 (Version 1)
Quarter: 2020Q3

REPORT INFORMATION
  Report Type: Report from Study
  Country: CN (occurrence: CN)
  Receive Date: 20200813
  Receipt Date: 20200813
  Transmission Date: 20201103
  Serious: Yes (Other)
  Sender: FDA-Public Use
  Company Number: CN-TEVA-2020-CN-1812561

PATIENT

DRUGS (1)
  1. CICLOSPORIN A [Suspect]
     Active Substance: CYCLOSPORINE
     Indication: APLASIA PURE RED CELL
     Dosage: FOR AT LEAST ONE AND HALF YEARS AND TAPERED GRADUALLY AFTERWARDS
     Route: 065

REACTIONS (1)
  - Drug-induced liver injury [Recovering/Resolving]
